FAERS Safety Report 7646645-7 (Version None)
Quarter: 2011Q3

REPORT INFORMATION
  Report Type: 
  Country: None (occurrence: None)
  Receive Date: 20110801
  Receipt Date: 20110722
  Transmission Date: 20111222
  Serious: Yes (Other)
  Sender: FDA-Public Use
  Company Number: US-US-EMD SERONO, INC.-7069627

PATIENT
  Sex: Male
  Weight: 88 kg

DRUGS (3)
  1. REBIF [Suspect]
     Route: 058
     Dates: start: 20110601
  2. MOTRIN [Concomitant]
     Indication: PREMEDICATION
  3. REBIF [Suspect]
     Indication: MULTIPLE SCLEROSIS
     Route: 058
     Dates: start: 20081125

REACTIONS (2)
  - HERPES ZOSTER [None]
  - FATIGUE [None]
